FAERS Safety Report 10449563 (Version 1)
Quarter: 2014Q3

REPORT INFORMATION
  Report Type: Spontaneous
  Country: DK (occurrence: DE)
  Receive Date: 20140912
  Receipt Date: 20140912
  Transmission Date: 20150326
  Serious: Yes (Other)
  Sender: FDA-Public Use
  Company Number: DE-FRI-1000070544

PATIENT
  Age: 45 Year
  Sex: Male

DRUGS (1)
  1. ESCITALOPRAM [Suspect]
     Active Substance: ESCITALOPRAM OXALATE
     Dosage: CHANGING DOSAGES
     Route: 048

REACTIONS (8)
  - Hypertriglyceridaemia [Unknown]
  - Glycosylated haemoglobin increased [Unknown]
  - Migraine with aura [Unknown]
  - Weight increased [Unknown]
  - Drug withdrawal syndrome [Unknown]
  - Atrial fibrillation [Unknown]
  - Depersonalisation [Not Recovered/Not Resolved]
  - Hypercholesterolaemia [Unknown]
